FAERS Safety Report 12130660 (Version 1)
Quarter: 2016Q1

REPORT INFORMATION
  Report Type: Spontaneous
  Country: GB (occurrence: GB)
  Receive Date: 20160301
  Receipt Date: 20160301
  Transmission Date: 20160526
  Serious: Yes (Hospitalization)
  Sender: FDA-Public Use
  Company Number: GB-B. BRAUN MEDICAL INC.-1048517

PATIENT
  Age: 35 Year
  Sex: Female
  Weight: 51 kg

DRUGS (2)
  1. CONTRACEPTIVE IMPLANT [Concomitant]
  2. LIDOCAINE. [Suspect]
     Active Substance: LIDOCAINE
     Indication: INTRA-UTERINE CONTRACEPTIVE DEVICE REMOVAL
     Route: 058
     Dates: start: 20160208, end: 20160208

REACTIONS (8)
  - Paraesthesia [None]
  - Hypoaesthesia [None]
  - Malaise [None]
  - Loss of consciousness [None]
  - Bradycardia [None]
  - Syncope [None]
  - Hypotension [None]
  - No reaction on previous exposure to drug [None]
